FAERS Safety Report 7378161-4 (Version None)
Quarter: 2011Q1

REPORT INFORMATION
  Report Type: 
  Country: None (occurrence: None)
  Receive Date: 20110328
  Receipt Date: 20110318
  Transmission Date: 20110831
  Serious: Yes (Hospitalization, Disabling)
  Sender: FDA-Public Use
  Company Number: A0653201A

PATIENT
  Age: 58 Year
  Sex: Male

DRUGS (10)
  1. PLAVIX [Concomitant]
  2. WELLBUTRIN [Concomitant]
  3. AMBIEN [Concomitant]
  4. AVANDAMET [Suspect]
     Route: 048
  5. LYRICA [Concomitant]
  6. METOPROLOL SUCCINATE [Concomitant]
  7. SYNTHROID [Concomitant]
  8. STARLIX [Concomitant]
  9. CRESTOR [Concomitant]
  10. LEXAPRO [Concomitant]

REACTIONS (3)
  - JOINT SWELLING [None]
  - MYOCARDIAL INFARCTION [None]
  - ADVERSE EVENT [None]
